FAERS Safety Report 11294506 (Version 1)
Quarter: 2015Q3

REPORT INFORMATION
  Report Type: Spontaneous
  Country: US (occurrence: None)
  Receive Date: 20150721
  Receipt Date: 20150721
  Transmission Date: 20151125
  Serious: Yes (Hospitalization, Other)
  Sender: FDA-Public Use
  Company Number: CO-LA-US-2015-026

PATIENT
  Age: 66 Year
  Sex: Female

DRUGS (1)
  1. DIGOXIN (DIGOXIN) [Suspect]
     Active Substance: DIGOXIN
     Indication: ATRIAL FIBRILLATION

REACTIONS (9)
  - Cardioactive drug level increased [None]
  - Lower gastrointestinal haemorrhage [None]
  - Anuria [None]
  - Bradycardia [None]
  - Hypotension [None]
  - Cardiac arrest [None]
  - Acute kidney injury [None]
  - Ventricular fibrillation [None]
  - Toxicity to various agents [None]
